FAERS Safety Report 7151919-2 (Version None)
Quarter: 2010Q4

REPORT INFORMATION
  Report Type: 
  Country: None (occurrence: None)
  Receive Date: 20101210
  Receipt Date: 20101201
  Transmission Date: 20110411
  Serious: Yes (Other)
  Sender: FDA-Public Use
  Company Number: CA-MERCK-1012USA00545

PATIENT
  Age: 45 Year
  Sex: Female

DRUGS (4)
  1. SINGULAIR [Suspect]
     Indication: ASTHMA
     Route: 048
     Dates: start: 20050101, end: 20090101
  2. SINGULAIR [Suspect]
     Route: 048
     Dates: start: 20090101, end: 20100919
  3. PLAVIX [Concomitant]
     Route: 065
  4. ALEVE (CAPLET) [Concomitant]
     Route: 065

REACTIONS (24)
  - ABDOMINAL PAIN UPPER [None]
  - AGGRESSION [None]
  - ARTHRALGIA [None]
  - ASTHENIA [None]
  - CATARACT [None]
  - DEPRESSION [None]
  - DYSPEPSIA [None]
  - FATIGUE [None]
  - INFLAMMATION [None]
  - IRRITABILITY [None]
  - JOINT SWELLING [None]
  - LOCALISED INFECTION [None]
  - MALAISE [None]
  - MIGRAINE WITH AURA [None]
  - MUSCLE SPASMS [None]
  - NERVOUS SYSTEM DISORDER [None]
  - PAIN [None]
  - PALPITATIONS [None]
  - PARALYSIS [None]
  - RAYNAUD'S PHENOMENON [None]
  - SYNOVIAL CYST [None]
  - TRANSIENT ISCHAEMIC ATTACK [None]
  - TREMOR [None]
  - VIITH NERVE PARALYSIS [None]
